FAERS Safety Report 10037295 (Version 2)
Quarter: 2014Q1

REPORT INFORMATION
  Report Type: Spontaneous
  Country: RU (occurrence: RU)
  Receive Date: 20140326
  Receipt Date: 20140326
  Transmission Date: 20141002
  Serious: Yes (Other)
  Sender: FDA-Public Use
  Company Number: RU-BAYER-2014-042010

PATIENT
  Sex: Female

DRUGS (2)
  1. AVELOX [Suspect]
     Indication: PELVIC INFLAMMATORY DISEASE
     Dosage: 400 MG, QD
     Route: 048
     Dates: start: 20140317, end: 20140317
  2. CERAZETTE [Concomitant]
     Dosage: 1 DF, QD
     Route: 048

REACTIONS (3)
  - Oedema [Recovered/Resolved]
  - Dyspnoea [Recovered/Resolved]
  - Asphyxia [Recovered/Resolved]
